FAERS Safety Report 15298865 (Version 1)
Quarter: 2018Q3

REPORT INFORMATION
  Report Type: Spontaneous
  Country: US (occurrence: US)
  Receive Date: 20180808
  Receipt Date: 20180808
  Transmission Date: 20181010
  Serious: Yes (Other)
  Sender: FDA-Public Use
  Company Number: None

PATIENT
  Age: 4 Year
  Sex: Male

DRUGS (1)
  1. EPIPEN JR [Suspect]
     Active Substance: EPINEPHRINE
     Indication: HYPERSENSITIVITY
     Route: 030
     Dates: start: 20160327, end: 20160327

REACTIONS (7)
  - Incorrect dose administered by device [None]
  - Scar [None]
  - Anaphylactic reaction [None]
  - Underdose [None]
  - Laceration [None]
  - Wound [None]
  - Needle issue [None]

NARRATIVE: CASE EVENT DATE: 20160327
